FAERS Safety Report 25752557 (Version 3)
Quarter: 2025Q4

REPORT INFORMATION
  Report Type: Spontaneous
  Country: CN (occurrence: CN)
  Receive Date: 20250902
  Receipt Date: 20251110
  Transmission Date: 20260119
  Serious: Yes (Hospitalization, Other)
  Sender: DAIICHI
  Company Number: CN-DSJP-DS-2025-161911-CN

PATIENT
  Age: 50 Year
  Sex: Female
  Weight: 49 kg

DRUGS (3)
  1. ENHERTU [Suspect]
     Active Substance: FAM-TRASTUZUMAB DERUXTECAN-NXKI
     Indication: Neoplasm
     Dosage: 200 MG, ONCE EVERY 3 WK
     Route: 042
     Dates: start: 20241011, end: 20241011
  2. ENHERTU [Suspect]
     Active Substance: FAM-TRASTUZUMAB DERUXTECAN-NXKI
     Dosage: 200 MG, QD
     Route: 042
     Dates: start: 20250717, end: 20250717
  3. DEXTROSE [Concomitant]
     Active Substance: DEXTROSE MONOHYDRATE
     Indication: Solvent sensitivity
     Dosage: 100 ML, QD
     Route: 041
     Dates: start: 20250717, end: 20250717

REACTIONS (2)
  - Myelosuppression [Recovered/Resolved]
  - Myelosuppression [Unknown]

NARRATIVE: CASE EVENT DATE: 20250725
